FAERS Safety Report 9522559 (Version 2)
Quarter: 2015Q1

REPORT INFORMATION
  Report Type: Spontaneous
  Country: US (occurrence: US)
  Receive Date: 20130913
  Receipt Date: 20150310
  Transmission Date: 20150721
  Serious: Yes (Hospitalization, Other)
  Sender: FDA-Public Use
  Company Number: US-BAYER-2013-110791

PATIENT
  Age: 22 Year
  Sex: Female
  Weight: 68.48 kg

DRUGS (4)
  1. MIRENA [Suspect]
     Active Substance: LEVONORGESTREL
     Indication: CONTRACEPTION
     Dosage: 20 MCG/24HR, CONT
     Route: 015
     Dates: start: 20081104, end: 20100607
  2. ZANTAC [Concomitant]
     Active Substance: RANITIDINE HYDROCHLORIDE
     Indication: GASTROOESOPHAGEAL REFLUX DISEASE
  3. ATIVAN [Concomitant]
     Active Substance: LORAZEPAM
     Indication: ANXIETY
  4. SOMA [Concomitant]
     Active Substance: CARISOPRODOL

REACTIONS (11)
  - Injury [None]
  - Device dislocation [None]
  - Pain [None]
  - Anxiety [None]
  - Medical device discomfort [None]
  - Procedural pain [None]
  - Medical device pain [None]
  - Device failure [None]
  - Emotional distress [None]
  - Scar [None]
  - Device issue [None]

NARRATIVE: CASE EVENT DATE: 201006
